FAERS Safety Report 18769909 (Version 2)
Quarter: 2021Q1

REPORT INFORMATION
  Report Type: Report from Study
  Country: CN (occurrence: CN)
  Receive Date: 20210121
  Receipt Date: 20210312
  Transmission Date: 20210419
  Serious: Yes (Hospitalization)
  Sender: FDA-Public Use
  Company Number: CN-BRISTOL-MYERS SQUIBB COMPANY-BMS-2020-106037

PATIENT
  Sex: Female

DRUGS (1)
  1. NIVOLUMAB [Suspect]
     Active Substance: NIVOLUMAB
     Indication: SQUAMOUS CELL CARCINOMA
     Dosage: 100 MILLIGRAM, Q2WK
     Route: 042
     Dates: start: 20200805

REACTIONS (3)
  - Skeletal injury [Unknown]
  - Movement disorder [Unknown]
  - Ligament sprain [Unknown]
